FAERS Safety Report 11155703 (Version 2)
Quarter: 2015Q2

REPORT INFORMATION
  Report Type: Spontaneous
  Country: US (occurrence: US)
  Receive Date: 20150602
  Receipt Date: 20150603
  Transmission Date: 20150821
  Serious: Yes (Other)
  Sender: FDA-Public Use
  Company Number: US-SA-2015SA071958

PATIENT
  Age: 25 Year
  Sex: Female

DRUGS (1)
  1. LEMTRADA [Suspect]
     Active Substance: ALEMTUZUMAB
     Route: 041
     Dates: start: 20150518, end: 20150520

REACTIONS (2)
  - Headache [Unknown]
  - Carotid artery dissection [Unknown]

NARRATIVE: CASE EVENT DATE: 2015
